FAERS Safety Report 17158238 (Version 1)
Quarter: 2019Q4

REPORT INFORMATION
  Report Type: Report from Study
  Country: CO (occurrence: CO)
  Receive Date: 20191216
  Receipt Date: 20191216
  Transmission Date: 20200122
  Serious: Yes (Death, Hospitalization, Other)
  Sender: FDA-Public Use
  Company Number: CO-ASTELLAS-2019US050032

PATIENT
  Age: 70 Year
  Sex: Male

DRUGS (1)
  1. ENZALUTAMIDE [Suspect]
     Active Substance: ENZALUTAMIDE
     Indication: HORMONE-REFRACTORY PROSTATE CANCER
     Route: 048
     Dates: start: 20190422

REACTIONS (6)
  - Malignant neoplasm progression [Unknown]
  - Ill-defined disorder [Unknown]
  - Death [Fatal]
  - Eating disorder [Unknown]
  - Immunodeficiency [Unknown]
  - Vomiting [Unknown]

NARRATIVE: CASE EVENT DATE: 20190830
